FAERS Safety Report 5999756-6 (Version None)
Quarter: 2008Q4

REPORT INFORMATION
  Report Type: 
  Country: None (occurrence: None)
  Receive Date: 20081211
  Receipt Date: 20081211
  Transmission Date: 20090506
  Serious: Yes (Other)
  Sender: FDA-Public Use
  Company Number: None

PATIENT
  Sex: Female

DRUGS (4)
  1. CARBAMAZEPINE [Suspect]
     Indication: EPILEPSY
     Dosage: 200MG
     Dates: start: 20050301
  2. CARBAMAZEPINE [Suspect]
     Indication: MENTAL RETARDATION
     Dosage: 200MG
     Dates: start: 20050301
  3. CARBAMAZEPINE [Suspect]
     Indication: EPILEPSY
     Dosage: 200MG
     Dates: start: 20050401
  4. CARBAMAZEPINE [Suspect]
     Indication: MENTAL RETARDATION
     Dosage: 200MG
     Dates: start: 20050401

REACTIONS (1)
  - CONVULSION [None]
